FAERS Safety Report 6801585-8 (Version None)
Quarter: 2010Q2

REPORT INFORMATION
  Report Type: 
  Country: None (occurrence: None)
  Receive Date: 20100629
  Receipt Date: 20100602
  Transmission Date: 20101027
  Serious: Yes (Hospitalization, Other)
  Sender: FDA-Public Use
  Company Number: US-BAYER-200941137NA

PATIENT
  Age: 38 Year
  Sex: Female
  Weight: 145 kg

DRUGS (13)
  1. YASMIN [Suspect]
     Indication: CONTRACEPTION
     Dates: start: 20040101, end: 20071001
  2. HYDROCHLOROTHIAZIDE [Concomitant]
  3. NAPROSYN [Concomitant]
  4. ADVIL LIQUI-GELS [Concomitant]
  5. PAXIL [Concomitant]
  6. FLUOXETINE [Concomitant]
  7. MICROGESTIN 1.5/30 [Concomitant]
  8. LISINOPRIL [Concomitant]
  9. COUMADIN [Concomitant]
     Route: 048
  10. COUMADIN [Concomitant]
     Route: 048
  11. LOVENOX [Concomitant]
     Dosage: 1 MG/KG
     Route: 058
  12. PREDNISONE [Concomitant]
     Route: 065
  13. ALBUTEROL [Concomitant]
     Route: 065

REACTIONS (2)
  - DEEP VEIN THROMBOSIS [None]
  - PULMONARY EMBOLISM [None]
